FAERS Safety Report 15393960 (Version 2)
Quarter: 2018Q4

REPORT INFORMATION
  Report Type: Spontaneous
  Country: US (occurrence: US)
  Receive Date: 20180917
  Receipt Date: 20181116
  Transmission Date: 20190204
  Serious: No
  Sender: FDA-Public Use
  Company Number: US-ASTRAZENECA-2018SF12418

PATIENT
  Sex: Female
  Weight: 90.7 kg

DRUGS (2)
  1. LEVAMIR [Concomitant]
     Indication: TYPE 2 DIABETES MELLITUS
     Dosage: 36 UNITS EVERY NIGHT
     Dates: start: 2014
  2. BYDUREON [Suspect]
     Active Substance: EXENATIDE
     Indication: TYPE 2 DIABETES MELLITUS
     Route: 058
     Dates: start: 201802

REACTIONS (4)
  - Incorrect dose administered by device [Recovered/Resolved]
  - Device malfunction [Recovered/Resolved]
  - Injection site extravasation [Recovered/Resolved]
  - Injection site pain [Recovered/Resolved]
